FAERS Safety Report 9445270 (Version 2)
Quarter: 2013Q3

REPORT INFORMATION
  Report Type: Spontaneous
  Country: JP (occurrence: JP)
  Receive Date: 20130807
  Receipt Date: 20130812
  Transmission Date: 20140515
  Serious: Yes (Hospitalization)
  Sender: FDA-Public Use
  Company Number: JP-GLAXOSMITHKLINE-B0913203A

PATIENT
  Age: 69 Year
  Sex: Male

DRUGS (6)
  1. HEPSERA 10 [Suspect]
     Indication: PRODUCT USED FOR UNKNOWN INDICATION
     Dosage: 10MG ALTERNATE DAYS
     Route: 048
  2. ZEFIX [Suspect]
     Indication: PRODUCT USED FOR UNKNOWN INDICATION
     Route: 048
  3. GRACEPTOR [Concomitant]
     Route: 048
  4. PREDONINE [Concomitant]
     Route: 065
  5. GASTER D [Concomitant]
     Route: 048
  6. MICARDIS [Concomitant]
     Route: 048

REACTIONS (2)
  - Fanconi syndrome [Not Recovered/Not Resolved]
  - Osteomalacia [Unknown]
